FAERS Safety Report 13740557 (Version 1)
Quarter: 2017Q3

REPORT INFORMATION
  Report Type: Report from Study
  Country: US (occurrence: US)
  Receive Date: 20170711
  Receipt Date: 20170711
  Transmission Date: 20171127
  Serious: Yes (Other)
  Sender: FDA-Public Use
  Company Number: US-AEGERION PHARMACEUTICAL, INC-AEGR003244

PATIENT
  Sex: Female
  Weight: 50.79 kg

DRUGS (1)
  1. JUXTAPID [Suspect]
     Active Substance: LOMITAPIDE MESYLATE
     Indication: TYPE IIA HYPERLIPIDAEMIA
     Dosage: 5 MG, QD AT HS
     Route: 048
     Dates: start: 20150513, end: 2017

REACTIONS (2)
  - Breast cancer [Unknown]
  - Therapy cessation [Unknown]

NARRATIVE: CASE EVENT DATE: 2017
